FAERS Safety Report 6602619-6 (Version None)
Quarter: 2010Q1

REPORT INFORMATION
  Report Type: 
  Country: None (occurrence: None)
  Receive Date: 20100217
  Receipt Date: 20100205
  Transmission Date: 20100710
  Serious: Yes (Hospitalization)
  Sender: FDA-Public Use
  Company Number: 233114J09USA

PATIENT
  Age: 46 Year
  Sex: Female
  Weight: 91 kg

DRUGS (6)
  1. REBIF [Suspect]
     Indication: MULTIPLE SCLEROSIS
     Dosage: 44 MCG, 3 IN 1 WEEKS, SUBCUTANEOUS, , NOT REPORTED, NOT  REPORTED
     Route: 058
     Dates: start: 20030101, end: 20100101
  2. REBIF [Suspect]
     Indication: MULTIPLE SCLEROSIS
     Dosage: 44 MCG, 3 IN 1 WEEKS, SUBCUTANEOUS, , NOT REPORTED, NOT  REPORTED
     Route: 058
     Dates: start: 20100101
  3. CARBAMAZEPINE [Concomitant]
  4. CYMBALTA [Concomitant]
  5. HYDROCODONE BITARTRATE [Concomitant]
  6. DULCOLAX [Concomitant]

REACTIONS (3)
  - BREAST CANCER STAGE II [None]
  - DEPRESSION [None]
  - TRIGEMINAL NEURALGIA [None]
